FAERS Safety Report 10406165 (Version 3)
Quarter: 2014Q4

REPORT INFORMATION
  Report Type: Spontaneous
  Country: US (occurrence: US)
  Receive Date: 20140825
  Receipt Date: 20141215
  Transmission Date: 20150528
  Serious: Yes (Hospitalization, Other)
  Sender: FDA-Public Use
  Company Number: US-BAYER-2014-126874

PATIENT
  Age: 31 Year
  Sex: Female
  Weight: 80.27 kg

DRUGS (9)
  1. MIRENA [Suspect]
     Active Substance: LEVONORGESTREL
     Indication: CONTRACEPTION
     Dosage: 20 MCG/24HR, CONT
     Route: 015
     Dates: start: 20111209, end: 20131004
  2. LO LOESTRIN FE [Concomitant]
     Active Substance: ETHINYL ESTRADIOL\NORETHINDRONE ACETATE
  3. TERAZOL [Concomitant]
     Active Substance: TERCONAZOLE
  4. FLAGYL [Concomitant]
     Active Substance: METRONIDAZOLE\METRONIDAZOLE HYDROCHLORIDE
  5. MOTRIN [Concomitant]
     Active Substance: IBUPROFEN
  6. CLOTRIMAZOLE. [Concomitant]
     Active Substance: CLOTRIMAZOLE
     Dosage: 1 %, BID
     Dates: start: 20130623
  7. NAPRELAN [Concomitant]
     Active Substance: NAPROXEN SODIUM
  8. DIFLUCAN [Concomitant]
     Active Substance: FLUCONAZOLE
     Dosage: 150 MG, NOW
     Dates: start: 20130623
  9. ALEVE [Concomitant]
     Active Substance: NAPROXEN SODIUM

REACTIONS (6)
  - Device difficult to use [None]
  - Uterine perforation [None]
  - Complication of device removal [None]
  - Device breakage [None]
  - Injury [None]
  - Pain [None]

NARRATIVE: CASE EVENT DATE: 201309
